FAERS Safety Report 4768151-X (Version None)
Quarter: 2005Q3

REPORT INFORMATION
  Report Type: 
  Country: None (occurrence: None)
  Receive Date: 20050912
  Receipt Date: 20050912
  Transmission Date: 20060218
  Serious: Yes (Hospitalization)
  Sender: FDA-Public Use
  Company Number: None

PATIENT
  Age: 69 Year
  Sex: Female
  Weight: 87.9978 kg

DRUGS (12)
  1. TAXOTERE [Suspect]
     Indication: NON-SMALL CELL LUNG CANCER STAGE IIIB
     Dosage: 42 MG IV WEEKLY
     Route: 042
     Dates: start: 20050802
  2. TAXOTERE [Suspect]
     Indication: NON-SMALL CELL LUNG CANCER STAGE IIIB
     Dosage: 42 MG IV WEEKLY
     Route: 042
     Dates: start: 20050809
  3. TAXOTERE [Suspect]
     Indication: NON-SMALL CELL LUNG CANCER STAGE IIIB
     Dosage: 42 MG IV WEEKLY
     Route: 042
     Dates: start: 20050816
  4. TAXOTERE [Suspect]
     Indication: NON-SMALL CELL LUNG CANCER STAGE IIIB
     Dosage: 42 MG IV WEEKLY
     Route: 042
     Dates: start: 20050823
  5. TAXOTERE [Suspect]
     Indication: NON-SMALL CELL LUNG CANCER STAGE IIIB
     Dosage: 42 MG IV WEEKLY
     Route: 042
     Dates: start: 20050830
  6. TAXOTERE [Suspect]
     Indication: NON-SMALL CELL LUNG CANCER STAGE IIIB
     Dosage: 42 MG IV WEEKLY
     Route: 042
     Dates: start: 20050906
  7. CARBOPLATIN [Suspect]
     Indication: NON-SMALL CELL LUNG CANCER STAGE IIIB
     Dosage: 183 MG IV WEEKLY
     Route: 042
     Dates: start: 20050802
  8. CARBOPLATIN [Suspect]
     Indication: NON-SMALL CELL LUNG CANCER STAGE IIIB
     Dosage: 183 MG IV WEEKLY
     Route: 042
     Dates: start: 20050809
  9. CARBOPLATIN [Suspect]
     Indication: NON-SMALL CELL LUNG CANCER STAGE IIIB
     Dosage: 183 MG IV WEEKLY
     Route: 042
     Dates: start: 20050816
  10. CARBOPLATIN [Suspect]
     Indication: NON-SMALL CELL LUNG CANCER STAGE IIIB
     Dosage: 183 MG IV WEEKLY
     Route: 042
     Dates: start: 20050823
  11. CARBOPLATIN [Suspect]
     Indication: NON-SMALL CELL LUNG CANCER STAGE IIIB
     Dosage: 183 MG IV WEEKLY
     Route: 042
     Dates: start: 20050906
  12. RADIATION [Concomitant]

REACTIONS (9)
  - ATRIAL FIBRILLATION [None]
  - DEHYDRATION [None]
  - DIARRHOEA [None]
  - HYPOTENSION [None]
  - NEUTROPENIA [None]
  - OESOPHAGITIS [None]
  - RENAL FAILURE ACUTE [None]
  - SINUS TACHYCARDIA [None]
  - TACHYCARDIA [None]
